FAERS Safety Report 4968119-4 (Version None)
Quarter: 2006Q2

REPORT INFORMATION
  Report Type: 
  Country: None (occurrence: None)
  Receive Date: 20060405
  Receipt Date: 20060221
  Transmission Date: 20061013
  Serious: Yes (Other)
  Sender: FDA-Public Use
  Company Number: 805#1#2006-00008

PATIENT
  Age: 76 Year
  Sex: Female

DRUGS (14)
  1. ALPROSTADIL [Suspect]
     Indication: ARTERIOSCLEROSIS OBLITERANS
     Dosage: 120 MCG (60 MCG 2 IN 1 DAY (S)) INTRAVENOUS DRIP
     Route: 041
     Dates: start: 20060126, end: 20060208
  2. FUROSEMIDE [Suspect]
     Indication: OEDEMA
     Dosage: 10 MG ORAL
     Route: 048
     Dates: start: 20060208, end: 20060218
  3. ROPION (FLURBIPROFEN AXETIL) [Suspect]
     Indication: ARTERIOSCLEROSIS OBLITERANS
     Dosage: 50 MG (50 MG 1 IN 1 DAY (S)) INTRAVENOUS DRIP
     Route: 041
     Dates: start: 20060126, end: 20060216
  4. ASCORBIC ACID [Concomitant]
  5. ECABET SODIUM (ECABET MONOSODIUM) [Concomitant]
  6. DILTIAZEM HYDROCHLORIDE (DILTIAZEM) [Concomitant]
  7. VOGLIBOSE (VOGLIBOSE) [Concomitant]
  8. AMLODIPINE BESYLATE [Concomitant]
  9. SARPOGRELATE HYDROCHLORIDE (SARPOGRELATE HYDROCHLORIDE) [Concomitant]
  10. BERAPROST SODIUM (BERAPROST SODIUM) [Concomitant]
  11. PITAVASTATIN CALCIUM [Concomitant]
  12. RHYTHMY (RILMAZAFONE) [Concomitant]
  13. AMITRIPTYLINE HCL [Concomitant]
  14. EPADEL (ETHYL ICOSAPENTATE) [Concomitant]

REACTIONS (7)
  - ALANINE AMINOTRANSFERASE INCREASED [None]
  - ASPARTATE AMINOTRANSFERASE INCREASED [None]
  - BLOOD ALBUMIN DECREASED [None]
  - BLOOD ALKALINE PHOSPHATASE INCREASED [None]
  - BLOOD LACTATE DEHYDROGENASE INCREASED [None]
  - HEPATIC FUNCTION ABNORMAL [None]
  - LABORATORY TEST ABNORMAL [None]
